FAERS Safety Report 13230319 (Version 1)
Quarter: 2017Q1

REPORT INFORMATION
  Report Type: Spontaneous
  Country: SE (occurrence: SE)
  Receive Date: 20170214
  Receipt Date: 20170214
  Transmission Date: 20170428
  Serious: Yes (Hospitalization)
  Sender: FDA-Public Use
  Company Number: SE-TEVA-738448ACC

PATIENT
  Age: 65 Year
  Sex: Male

DRUGS (4)
  1. IMOVANE [Suspect]
     Active Substance: ZOPICLONE
     Dates: start: 20170123, end: 20170123
  2. PROPAVAN [Suspect]
     Active Substance: PROPIOMAZINE
     Dates: start: 20170123, end: 20170123
  3. WARAN [Concomitant]
     Active Substance: WARFARIN SODIUM
  4. STESOLID [Suspect]
     Active Substance: DIAZEPAM
     Dates: start: 20170123, end: 20170123

REACTIONS (2)
  - Intentional overdose [Recovered/Resolved]
  - Intentional self-injury [Recovered/Resolved]

NARRATIVE: CASE EVENT DATE: 20170123
